FAERS Safety Report 12049165 (Version 1)
Quarter: 2016Q1

REPORT INFORMATION
  Report Type: Spontaneous
  Country: US (occurrence: None)
  Receive Date: 20160208
  Receipt Date: 20160208
  Transmission Date: 20160526
  Serious: Yes (Life-Threatening, Hospitalization, Disabling)
  Sender: FDA-Public Use
  Company Number: None

PATIENT
  Age: 58 Year
  Sex: Male
  Weight: 113.4 kg

DRUGS (9)
  1. ATIVAN [Concomitant]
     Active Substance: LORAZEPAM
  2. VANCOMYCIN [Concomitant]
     Active Substance: VANCOMYCIN
  3. MORPHINE [Concomitant]
     Active Substance: MORPHINE
  4. MULTIVITAMIN [Concomitant]
     Active Substance: VITAMINS
  5. PRECEDEX [Suspect]
     Active Substance: DEXMEDETOMIDINE HYDROCHLORIDE
     Indication: AGITATION
     Dates: start: 20160127, end: 20160131
  6. DEPAKOTE [Concomitant]
     Active Substance: DIVALPROEX SODIUM
  7. METOPROLOL. [Concomitant]
     Active Substance: METOPROLOL
  8. CEFEPIME [Concomitant]
     Active Substance: CEFEPIME HYDROCHLORIDE
  9. BOOST [Concomitant]

REACTIONS (5)
  - Respiratory distress [None]
  - Incorrect drug administration duration [None]
  - Dry mouth [None]
  - Agitation [None]
  - Wheezing [None]
